FAERS Safety Report 6175032-6 (Version None)
Quarter: 2009Q2

REPORT INFORMATION
  Report Type: 
  Country: None (occurrence: None)
  Receive Date: 20090430
  Receipt Date: 20090424
  Transmission Date: 20091009
  Serious: Yes (Other)
  Sender: FDA-Public Use
  Company Number: PHEH2009US04112

PATIENT
  Sex: Female

DRUGS (8)
  1. ZOMETA [Suspect]
     Indication: OSTEOPOROSIS
     Dosage: 3 MG, ANNUALLY
     Route: 042
     Dates: start: 20090414
  2. CARDIZEM CD [Concomitant]
  3. ACTONEL [Concomitant]
  4. LIPITOR [Concomitant]
  5. ASPIRIN [Concomitant]
     Dosage: 81 MG, UNK
  6. HYDROCHLOROTHIAZIDE [Concomitant]
  7. QUININE SULFATE [Concomitant]
  8. M.V.I. [Concomitant]

REACTIONS (6)
  - ARTHRALGIA [None]
  - BURSITIS [None]
  - C-REACTIVE PROTEIN INCREASED [None]
  - MUSCLE INJURY [None]
  - RED BLOOD CELL SEDIMENTATION RATE INCREASED [None]
  - WHITE BLOOD CELL COUNT INCREASED [None]
